FAERS Safety Report 24258767 (Version 1)
Quarter: 2024Q3

REPORT INFORMATION
  Report Type: Spontaneous
  Country: IR (occurrence: IR)
  Receive Date: 20240828
  Receipt Date: 20240828
  Transmission Date: 20241016
  Serious: Yes (Other)
  Sender: SANOFI AVENTIS
  Company Number: IR-SA-2024SA251560

PATIENT
  Age: 21 Year
  Sex: Male

DRUGS (2)
  1. OXALIPLATIN [Suspect]
     Active Substance: OXALIPLATIN
     Indication: Adenocarcinoma of colon
     Dosage: 130 MG/M2, Q3W
     Dates: start: 202303, end: 202311
  2. CAPECITABINE [Suspect]
     Active Substance: CAPECITABINE
     Indication: Adenocarcinoma of colon
     Dosage: 28000 MG/M2, Q3W
     Route: 048
     Dates: start: 202303, end: 202311

REACTIONS (1)
  - Cardiac haemangioma benign [Unknown]
